FAERS Safety Report 21738689 (Version 1)
Quarter: 2022Q4

REPORT INFORMATION
  Report Type: Spontaneous
  Country: US (occurrence: US)
  Receive Date: 20221216
  Receipt Date: 20221216
  Transmission Date: 20230113
  Serious: No
  Sender: FDA-Public Use
  Company Number: US-ENDO PHARMACEUTICALS INC-2022-001467

PATIENT
  Sex: Male
  Weight: 84.807 kg

DRUGS (12)
  1. XIAFLEX [Suspect]
     Active Substance: COLLAGENASE CLOSTRIDIUM HISTOLYTICUM
     Indication: Peyronie^s disease
     Dosage: UNK UNKNOWN, UNKNOWN (CYCLE ONE, INJECTION ONE)
     Route: 065
     Dates: start: 20220112
  2. XIAFLEX [Suspect]
     Active Substance: COLLAGENASE CLOSTRIDIUM HISTOLYTICUM
     Dosage: UNK UNKNOWN, UNKNOWN (CYCLE ONE, INJECTION TWO)
     Route: 065
     Dates: start: 20220122
  3. XIAFLEX [Suspect]
     Active Substance: COLLAGENASE CLOSTRIDIUM HISTOLYTICUM
     Dosage: UNK UNKNOWN, UNKNOWN (CYCLE TWO, INJECTION ONE)
     Route: 065
     Dates: start: 20220212
  4. XIAFLEX [Suspect]
     Active Substance: COLLAGENASE CLOSTRIDIUM HISTOLYTICUM
     Dosage: UNK UNKNOWN, UNKNOWN (CYCLE TWO, INJECTION TWO)
     Route: 065
     Dates: start: 20220222
  5. XIAFLEX [Suspect]
     Active Substance: COLLAGENASE CLOSTRIDIUM HISTOLYTICUM
     Dosage: UNK UNKNOWN, UNKNOWN (CYCLE THREE, INJECTION ONE)
     Route: 065
     Dates: start: 2022
  6. XIAFLEX [Suspect]
     Active Substance: COLLAGENASE CLOSTRIDIUM HISTOLYTICUM
     Dosage: UNK UNKNOWN, UNKNOWN (CYCLE THREE, INJECTION TWO)
     Route: 065
     Dates: start: 2022
  7. XIAFLEX [Suspect]
     Active Substance: COLLAGENASE CLOSTRIDIUM HISTOLYTICUM
     Dosage: UNK UNKNOWN, UNKNOWN (CYCLE FOUR, INJECTION ONE)
     Route: 065
     Dates: start: 2022
  8. XIAFLEX [Suspect]
     Active Substance: COLLAGENASE CLOSTRIDIUM HISTOLYTICUM
     Dosage: UNK UNKNOWN, UNKNOWN (CYCLE FOUR, INJECTION TWO)
     Route: 065
     Dates: start: 2022
  9. LOSARTAN [Concomitant]
     Active Substance: LOSARTAN
     Indication: Product used for unknown indication
     Dosage: 100 MG, DAILY
     Route: 065
  10. METFORMIN [Concomitant]
     Active Substance: METFORMIN HYDROCHLORIDE
     Indication: Product used for unknown indication
     Dosage: 1000 MG, BID
     Route: 065
  11. OZEMPIC [Concomitant]
     Active Substance: SEMAGLUTIDE
     Indication: Product used for unknown indication
     Dosage: UNK UNKNOWN, WEEKLY
     Route: 065
  12. UTI medication [Concomitant]
     Indication: Product used for unknown indication
     Dosage: UNK UNKNOWN, UNKNOWN
     Route: 065

REACTIONS (7)
  - Organic erectile dysfunction [Recovering/Resolving]
  - Penile swelling [Recovered/Resolved]
  - Penile contusion [Recovered/Resolved]
  - Therapeutic product effect incomplete [Unknown]
  - Off label use [Unknown]
  - Wrong technique in product usage process [Unknown]
  - Inappropriate schedule of product administration [Unknown]

NARRATIVE: CASE EVENT DATE: 20220101
